FAERS Safety Report 8416579-9 (Version None)
Quarter: 2012Q2

REPORT INFORMATION
  Report Type: 
  Country: None (occurrence: None)
  Receive Date: 20120323
  Receipt Date: 20110504
  Transmission Date: 20120825
  Serious: Yes (Hospitalization, Other)
  Sender: FDA-Public Use
  Company Number: 163-21880-11021854

PATIENT
  Age: 50 Year
  Sex: Male

DRUGS (5)
  1. REVLIMID [Suspect]
     Indication: MULTIPLE MYELOMA
     Dosage: 15 MG, X21 DAYS, PO ; 10 MG, X21 DAYS, PO
     Route: 048
     Dates: start: 20110118, end: 20110211
  2. REVLIMID [Suspect]
     Indication: MULTIPLE MYELOMA
     Dosage: 15 MG, X21 DAYS, PO ; 10 MG, X21 DAYS, PO
     Route: 048
     Dates: start: 20100902
  3. NEURONTIN [Concomitant]
  4. BACTRIM [Concomitant]
  5. ZOVIRAX [Concomitant]

REACTIONS (2)
  - NEUTROPENIA [None]
  - LOBAR PNEUMONIA [None]
